FAERS Safety Report 8532176-9 (Version None)
Quarter: 2012Q3

REPORT INFORMATION
  Report Type: 
  Country: None (occurrence: None)
  Receive Date: 20120723
  Receipt Date: 20120713
  Transmission Date: 20120928
  Serious: Yes (Hospitalization)
  Sender: FDA-Public Use
  Company Number: GR-GLAXOSMITHKLINE-B0815557A

PATIENT
  Sex: Female

DRUGS (5)
  1. EXELON [Suspect]
     Indication: DEMENTIA ALZHEIMER'S TYPE
     Dosage: 6ML TWICE PER DAY
     Route: 048
  2. COLECALCIFEROL + CALCIUM CARBONATE [Concomitant]
     Dosage: 1U TWICE PER DAY
  3. RISPERIDONE [Concomitant]
  4. ACENOCOUMAROL [Concomitant]
  5. PROPAFENONE HCL [Suspect]
     Indication: PRODUCT USED FOR UNKNOWN INDICATION
     Dosage: 75MG PER DAY
     Route: 048

REACTIONS (5)
  - SYNCOPE [None]
  - SINUS TACHYCARDIA [None]
  - VENTRICULAR TACHYCARDIA [None]
  - FAECAL INCONTINENCE [None]
  - VOMITING [None]
